FAERS Safety Report 7628544-X (Version None)
Quarter: 2011Q3

REPORT INFORMATION
  Report Type: 
  Country: None (occurrence: None)
  Receive Date: 20110720
  Receipt Date: 20110720
  Transmission Date: 20111222
  Serious: Yes (Other)
  Sender: FDA-Public Use
  Company Number: None

PATIENT
  Age: 66 Year
  Sex: Female
  Weight: 58.514 kg

DRUGS (2)
  1. TIAZAC [Suspect]
     Indication: TACHYCARDIA
     Dosage: 240MG QD PO
     Route: 048
     Dates: start: 20090416
  2. TIAZAC [Suspect]
     Indication: ARRHYTHMIA
     Dosage: 240MG QD PO
     Route: 048
     Dates: start: 20090416

REACTIONS (2)
  - DRUG INTOLERANCE [None]
  - PSYCHOTIC DISORDER [None]
